FAERS Safety Report 9934816 (Version 4)
Quarter: 2014Q2

REPORT INFORMATION
  Report Type: Report from Study
  Country: CO (occurrence: CO)
  Receive Date: 20140228
  Receipt Date: 20140424
  Transmission Date: 20141212
  Serious: Yes (Hospitalization)
  Sender: FDA-Public Use
  Company Number: CO-GLAXOSMITHKLINE-B0972251A

PATIENT
  Age: 74 Year
  Sex: Female
  Weight: 57 kg

DRUGS (7)
  1. FLUTICASONE FUROATE + VILANTEROL TRIFENATATE [Suspect]
     Indication: CHRONIC OBSTRUCTIVE PULMONARY DISEASE
  2. FUROSEMIDE [Concomitant]
     Indication: HYPERTENSION
     Dosage: 40MG PER DAY
     Route: 048
     Dates: start: 1984
  3. METOPROLOL [Concomitant]
     Indication: HYPERTENSION
     Dosage: 100MG PER DAY
     Route: 048
     Dates: start: 2011, end: 20140320
  4. LOSARTAN [Concomitant]
     Indication: HYPERTENSION
     Dosage: 100MG PER DAY
     Route: 048
     Dates: start: 2000
  5. ASA [Concomitant]
     Indication: CARDIOVASCULAR EVENT PROPHYLAXIS
     Dosage: 100MG PER DAY
     Route: 048
     Dates: start: 2000
  6. LOVASTATIN [Concomitant]
     Indication: DYSLIPIDAEMIA
     Dosage: 20MG PER DAY
     Route: 048
     Dates: start: 1984, end: 20140320
  7. LEVOTHYROXINE [Concomitant]
     Indication: HYPOTHYROIDISM
     Dosage: 50MCG PER DAY
     Route: 048
     Dates: start: 2011

REACTIONS (1)
  - Chest pain [Recovered/Resolved]
